FAERS Safety Report 6549834-8 (Version None)
Quarter: 2010Q1

REPORT INFORMATION
  Report Type: 
  Country: None (occurrence: None)
  Receive Date: 20100119
  Receipt Date: 20100108
  Transmission Date: 20100710
  Serious: Yes (Death)
  Sender: FDA-Public Use
  Company Number: 2009014884

PATIENT
  Age: 14 Year
  Sex: Male

DRUGS (10)
  1. ACTIQ [Suspect]
     Indication: CANCER PAIN
     Dosage: 400 MCG (200 MCG,1 IN 1 D),BU
     Route: 002
     Dates: start: 20091101
  2. MORPHINE SULFATE [Concomitant]
  3. DURAGESIC-100 [Concomitant]
  4. MORPHINE SULFATE [Concomitant]
  5. MORPHINE [Concomitant]
  6. GRANOCYTE (LENOGRASTIM) [Concomitant]
  7. ROVALCYTE (VALGANCICLOVIR) [Concomitant]
  8. WELLVONE (ATOVAQUONE) [Concomitant]
  9. VALACYCLOVIR HCL [Concomitant]
  10. ANTIBIOTICS (ANTIBIOTICS) [Concomitant]

REACTIONS (4)
  - ACUTE MYELOID LEUKAEMIA [None]
  - DRUG INEFFECTIVE [None]
  - DRUG PRESCRIBING ERROR [None]
  - MALIGNANT NEOPLASM PROGRESSION [None]
